FAERS Safety Report 7546152-6 (Version None)
Quarter: 2011Q2

REPORT INFORMATION
  Report Type: 
  Country: None (occurrence: None)
  Receive Date: 20110614
  Receipt Date: 20031021
  Transmission Date: 20111010
  Serious: Yes (Hospitalization, Other)
  Sender: FDA-Public Use
  Company Number: PHFR2003GB03538

PATIENT
  Sex: Male

DRUGS (2)
  1. CLOZARIL [Suspect]
     Indication: SCHIZOPHRENIA
     Dosage: 400 MG, QD
     Route: 048
     Dates: start: 20020501
  2. VALPROATE SODIUM [Suspect]
     Dosage: 2 G, QD
     Route: 048
     Dates: start: 20010901

REACTIONS (4)
  - LIVEDO RETICULARIS [None]
  - PHLEBITIS [None]
  - OEDEMA PERIPHERAL [None]
  - PETECHIAE [None]
